FAERS Safety Report 9955636 (Version 1)
Quarter: 2014Q1

REPORT INFORMATION
  Report Type: Report from Study
  Country: US (occurrence: US)
  Receive Date: 20140304
  Receipt Date: 20140304
  Transmission Date: 20141002
  Serious: No
  Sender: FDA-Public Use
  Company Number: US-ABBVIE-13P-163-1090408-00

PATIENT
  Age: 64 Year
  Sex: Female
  Weight: 96.25 kg

DRUGS (4)
  1. HUMIRA [Suspect]
     Indication: RHEUMATOID ARTHRITIS
     Route: 058
     Dates: start: 2007
  2. METHOTREXATE [Suspect]
     Indication: RHEUMATOID ARTHRITIS
     Dosage: SIX 2.5MG TABS WEEKLY ON FRIDAY
     Dates: start: 20130510
  3. NABUMETONE [Concomitant]
     Indication: RHEUMATOID ARTHRITIS
  4. TYLENOL ARTHRITIS [Concomitant]
     Indication: RHEUMATOID ARTHRITIS

REACTIONS (3)
  - Drug ineffective [Not Recovered/Not Resolved]
  - Arthralgia [Not Recovered/Not Resolved]
  - Diarrhoea [Not Recovered/Not Resolved]
